FAERS Safety Report 12042460 (Version 1)
Quarter: 2016Q1

REPORT INFORMATION
  Report Type: Report from Study
  Country: US (occurrence: US)
  Receive Date: 20160208
  Receipt Date: 20160208
  Transmission Date: 20160526
  Serious: Yes (Other)
  Sender: FDA-Public Use
  Company Number: US-ABBVIE-16K-163-1551460-00

PATIENT
  Sex: Female

DRUGS (2)
  1. HUMIRA [Suspect]
     Active Substance: ADALIMUMAB
     Indication: RHEUMATOID ARTHRITIS
     Route: 058
  2. HUMIRA [Suspect]
     Active Substance: ADALIMUMAB
     Route: 058
     Dates: start: 20151115

REACTIONS (8)
  - Dry eye [Unknown]
  - Muscle tightness [Unknown]
  - Sinus operation [Unknown]
  - Vocal cord paralysis [Unknown]
  - Wrist fracture [Unknown]
  - Bursitis [Unknown]
  - Visual impairment [Unknown]
  - Fall [Unknown]

NARRATIVE: CASE EVENT DATE: 2007
